FAERS Safety Report 4609290-3 (Version None)
Quarter: 2005Q1

REPORT INFORMATION
  Report Type: 
  Country: None (occurrence: None)
  Receive Date: 20050301
  Receipt Date: 20040206
  Transmission Date: 20050727
  Serious: Yes (Hospitalization)
  Sender: FDA-Public Use
  Company Number: 002#2#2002-00047

PATIENT
  Age: 58 Year
  Sex: Female
  Weight: 90.7194 kg

DRUGS (4)
  1. REGLAN [Suspect]
     Indication: GASTROOESOPHAGEAL REFLUX DISEASE
     Dosage: 10MG, 2 IN 1 D; ORAL
     Route: 048
     Dates: start: 19981129, end: 20011008
  2. OMEPRAZOLE [Concomitant]
  3. PANTOPRAZOLE [Concomitant]
  4. CONJUGATED ESTROGENS [Concomitant]

REACTIONS (7)
  - BACK PAIN [None]
  - DIZZINESS [None]
  - HEADACHE [None]
  - MUSCLE CONTRACTIONS INVOLUNTARY [None]
  - PARAESTHESIA [None]
  - TARDIVE DYSKINESIA [None]
  - TREMOR [None]
